FAERS Safety Report 9016453 (Version 1)
Quarter: 2013Q1

REPORT INFORMATION
  Report Type: Spontaneous
  Country: US (occurrence: US)
  Receive Date: 20130116
  Receipt Date: 20130116
  Transmission Date: 20140127
  Serious: No
  Sender: FDA-Public Use
  Company Number: US-ASTRAZENECA-2011SE42743

PATIENT
  Age: 64 Year
  Sex: Female

DRUGS (5)
  1. LISINOPRIL [Suspect]
     Dosage: GENERIC
     Route: 048
  2. NEXIUM [Suspect]
     Indication: ULCER
     Route: 048
     Dates: start: 2003
  3. NEXIUM [Suspect]
     Indication: GASTROOESOPHAGEAL REFLUX DISEASE
     Route: 048
     Dates: start: 2003
  4. ASPIRIN [Suspect]
     Route: 048
  5. CRESTON [Concomitant]
     Indication: BLOOD CHOLESTEROL
     Route: 048

REACTIONS (7)
  - Prehypertension [Unknown]
  - Weight increased [Unknown]
  - Cough [Unknown]
  - Arthralgia [Recovering/Resolving]
  - Dyspepsia [Unknown]
  - Urticaria [Recovered/Resolved]
  - Drug hypersensitivity [Unknown]
